FAERS Safety Report 12191651 (Version 2)
Quarter: 2016Q1

REPORT INFORMATION
  Report Type: Spontaneous
  Country: FR (occurrence: FR)
  Receive Date: 20160318
  Receipt Date: 20160325
  Transmission Date: 20160526
  Serious: Yes (Hospitalization, Other)
  Sender: FDA-Public Use
  Company Number: FR-ASTRAZENECA-2016SE28226

PATIENT
  Age: 29896 Day
  Sex: Female

DRUGS (4)
  1. BISOPROLOL [Suspect]
     Active Substance: BISOPROLOL
     Indication: CARDIAC FAILURE
     Route: 048
     Dates: start: 201411
  2. COUMADINE [Suspect]
     Active Substance: WARFARIN SODIUM
     Indication: ATRIAL FIBRILLATION
     Route: 048
     Dates: start: 201412
  3. INEXIUM [Suspect]
     Active Substance: ESOMEPRAZOLE
     Route: 048
     Dates: start: 201411, end: 20160219
  4. MIANSERIN [Suspect]
     Active Substance: MIANSERIN
     Indication: DEPRESSION
     Route: 048
     Dates: start: 20151203, end: 20160216

REACTIONS (18)
  - Mitral valve incompetence [Unknown]
  - Respiratory tract infection viral [Unknown]
  - Interstitial lung disease [Unknown]
  - Agranulocytosis [Not Recovered/Not Resolved]
  - General physical health deterioration [Unknown]
  - Abdominal pain [Unknown]
  - Diverticulum [Unknown]
  - Aphasia [Unknown]
  - Acute kidney injury [Unknown]
  - Bile duct stone [Unknown]
  - Hepatomegaly [Unknown]
  - Cardiac murmur [Unknown]
  - Cough [Unknown]
  - Arrhythmia [Unknown]
  - Dysphagia [Unknown]
  - Pyrexia [Unknown]
  - Lymphadenopathy [Unknown]
  - Upper respiratory tract infection [Unknown]

NARRATIVE: CASE EVENT DATE: 20160215
